FAERS Safety Report 19087417 (Version 1)
Quarter: 2021Q2

REPORT INFORMATION
  Report Type: Report from Study
  Country: CO (occurrence: CO)
  Receive Date: 20210402
  Receipt Date: 20210402
  Transmission Date: 20210717
  Serious: Yes (Death)
  Sender: FDA-Public Use
  Company Number: CO-ASTRAZENECA-2021A248083

PATIENT
  Age: 25844 Day
  Sex: Female
  Weight: 79 kg

DRUGS (1)
  1. TAGRISSO [Suspect]
     Active Substance: OSIMERTINIB
     Indication: LUNG NEOPLASM MALIGNANT
     Route: 048
     Dates: start: 20210226

REACTIONS (8)
  - Headache [Unknown]
  - Somnolence [Unknown]
  - Diarrhoea [Unknown]
  - Discomfort [Unknown]
  - Malaise [Unknown]
  - Death [Fatal]
  - Rash [Unknown]
  - Vomiting [Unknown]

NARRATIVE: CASE EVENT DATE: 20210314
